FAERS Safety Report 16856724 (Version 1)
Quarter: 2019Q3

REPORT INFORMATION
  Report Type: Spontaneous
  Country: US (occurrence: US)
  Receive Date: 20190926
  Receipt Date: 20190926
  Transmission Date: 20191005
  Serious: No
  Sender: FDA-Public Use
  Company Number: US-TEVA-2019-US-1111735

PATIENT
  Sex: Female
  Weight: 77.18 kg

DRUGS (1)
  1. CYCLOBENZAPRINE. [Suspect]
     Active Substance: CYCLOBENZAPRINE
     Indication: MUSCLE SPASMS
     Dosage: FREQUENCY:2-3 TIMES A DAY BY MOUTH
     Route: 048
     Dates: start: 2019

REACTIONS (2)
  - Joint swelling [Unknown]
  - Peripheral swelling [Unknown]
